FAERS Safety Report 20192036 (Version 1)
Quarter: 2021Q4

REPORT INFORMATION
  Report Type: Spontaneous
  Country: GB (occurrence: GB)
  Receive Date: 20211216
  Receipt Date: 20211216
  Transmission Date: 20220303
  Serious: Yes (Other)
  Sender: FDA-Public Use
  Company Number: None

PATIENT
  Age: 25 Year
  Sex: Female
  Weight: 66 kg

DRUGS (7)
  1. PENICILLIN V [Suspect]
     Active Substance: PENICILLIN V
     Indication: Ill-defined disorder
     Dosage: UNK
     Route: 065
     Dates: start: 20211210
  2. CHLORHEXIDINE GLUCONATE [Concomitant]
     Active Substance: CHLORHEXIDINE GLUCONATE
     Indication: Ill-defined disorder
     Dosage: UNK, BID (USE TWICE DAILY)
     Route: 065
     Dates: start: 20211123
  3. BECLOMETHASONE DIPROPIONATE [Concomitant]
     Active Substance: BECLOMETHASONE DIPROPIONATE
     Indication: Ill-defined disorder
     Dosage: UNK, BID (INHALE 1PUFF TWICE A DAY VIA AEROCHAMBER)
     Route: 065
     Dates: start: 20201001
  4. HYDROCORTISONE [Concomitant]
     Active Substance: HYDROCORTISONE
     Indication: Ill-defined disorder
     Dosage: UNK (SUCK 4 TIMES/DAY)
     Route: 065
     Dates: start: 20211123, end: 20211128
  5. NICORETTE [Concomitant]
     Active Substance: NICOTINE
     Indication: Ill-defined disorder
     Dosage: UNK (USE AS NEEDED)
     Route: 065
     Dates: start: 20211126, end: 20211210
  6. PENICILLIN V [Concomitant]
     Active Substance: PENICILLIN V
     Indication: Ill-defined disorder
     Dosage: UNK (TAKE ONE 4 TIMES/DAY)
     Route: 065
     Dates: start: 20211208
  7. ALBUTEROL [Concomitant]
     Active Substance: ALBUTEROL
     Indication: Ill-defined disorder
     Dosage: UNK (INHALE 2 DOSES AS NEEDED VIA AEROCHAMBER)
     Route: 065
     Dates: start: 20201001

REACTIONS (1)
  - Adverse drug reaction [Recovered/Resolved]

NARRATIVE: CASE EVENT DATE: 20211210
